FAERS Safety Report 13622263 (Version 1)
Quarter: 2017Q2

REPORT INFORMATION
  Report Type: Spontaneous
  Country: US (occurrence: US)
  Receive Date: 20170607
  Receipt Date: 20170607
  Transmission Date: 20170830
  Serious: No
  Sender: FDA-Public Use
  Company Number: US-ROCHE-1890037

PATIENT
  Sex: Female

DRUGS (2)
  1. GABAPENTIN. [Suspect]
     Active Substance: GABAPENTIN
     Indication: NEUROPATHY PERIPHERAL
     Route: 048
     Dates: end: 20140611
  2. KLONOPIN [Suspect]
     Active Substance: CLONAZEPAM
     Indication: ANXIETY
     Route: 048

REACTIONS (7)
  - Fatigue [Unknown]
  - Wheezing [Unknown]
  - Dyspnoea [Unknown]
  - Abdominal discomfort [Recovered/Resolved]
  - Poor quality sleep [Unknown]
  - Oedema peripheral [Recovering/Resolving]
  - Skin ulcer [Unknown]
